FAERS Safety Report 9631690 (Version 1)
Quarter: 2013Q4

REPORT INFORMATION
  Report Type: Spontaneous
  Country: CO (occurrence: CO)
  Receive Date: 20131018
  Receipt Date: 20131018
  Transmission Date: 20140711
  Serious: Yes (Other)
  Sender: FDA-Public Use
  Company Number: CO-UCBSA-100469

PATIENT
  Age: 48 Year
  Sex: Female

DRUGS (3)
  1. CERTOLIZUMAB PEGOL [Suspect]
     Indication: RHEUMATOID ARTHRITIS
     Route: 058
     Dates: start: 20120828, end: 20130905
  2. LEFLUNOMIDE [Concomitant]
     Dates: start: 2008
  3. DEFLAZACORT [Concomitant]
     Dates: start: 2008

REACTIONS (1)
  - Rash [Unknown]
